FAERS Safety Report 16300366 (Version 4)
Quarter: 2022Q2

REPORT INFORMATION
  Report Type: Spontaneous
  Country: US (occurrence: None)
  Receive Date: 20190510
  Receipt Date: 20220427
  Transmission Date: 20220721
  Serious: Yes (Hospitalization, Other)
  Sender: FDA-Public Use
  Company Number: 2019SE65940

PATIENT
  Age: 696 Month
  Sex: Female
  Weight: 136.1 kg

DRUGS (68)
  1. NEXIUM [Suspect]
     Active Substance: ESOMEPRAZOLE MAGNESIUM
     Indication: Gastrooesophageal reflux disease
     Route: 048
     Dates: start: 199706, end: 199804
  2. NEXIUM [Suspect]
     Active Substance: ESOMEPRAZOLE MAGNESIUM
     Indication: Gastrooesophageal reflux disease
     Route: 048
     Dates: start: 20010201, end: 20170318
  3. NEXIUM 24HR [Suspect]
     Active Substance: ESOMEPRAZOLE MAGNESIUM
     Indication: Gastrooesophageal reflux disease
     Route: 048
     Dates: start: 20140301
  4. PREVACID [Suspect]
     Active Substance: LANSOPRAZOLE
     Indication: Gastrooesophageal reflux disease
     Route: 065
     Dates: start: 199706, end: 199804
  5. PREVACID [Suspect]
     Active Substance: LANSOPRAZOLE
     Indication: Gastrooesophageal reflux disease
     Route: 065
     Dates: start: 19970621, end: 19980415
  6. PROTONIX [Suspect]
     Active Substance: PANTOPRAZOLE SODIUM
     Indication: Gastrooesophageal reflux disease
     Route: 065
     Dates: start: 199706, end: 199804
  7. PROTONIX [Suspect]
     Active Substance: PANTOPRAZOLE SODIUM
     Indication: Gastrooesophageal reflux disease
     Route: 065
     Dates: start: 20170318
  8. ALLOPURINOL [Concomitant]
     Active Substance: ALLOPURINOL
  9. POTASSIUM CHLORIDE [Concomitant]
     Active Substance: POTASSIUM CHLORIDE
  10. MG OXIDE [Concomitant]
  11. SYNTHROID [Concomitant]
     Active Substance: LEVOTHYROXINE SODIUM
  12. FLOXIN [Concomitant]
     Active Substance: OFLOXACIN
  13. GABAPENTIN [Concomitant]
     Active Substance: GABAPENTIN
  14. ALBUTEROL [Concomitant]
     Active Substance: ALBUTEROL
  15. ENOXAPARIN [Concomitant]
     Active Substance: ENOXAPARIN
  16. MUPIROCIN CALCIUM [Concomitant]
     Active Substance: MUPIROCIN CALCIUM
  17. ZOFRAN [Concomitant]
     Active Substance: ONDANSETRON HYDROCHLORIDE
  18. KLONOPIN [Concomitant]
     Active Substance: CLONAZEPAM
  19. CLOTRIMAZOLE [Concomitant]
     Active Substance: CLOTRIMAZOLE
  20. ONDANSETRON HCL [Concomitant]
     Active Substance: ONDANSETRON HYDROCHLORIDE
  21. SODIUM CHLORIDE [Concomitant]
     Active Substance: SODIUM CHLORIDE
  22. METOPROLOL TARTRATE [Concomitant]
     Active Substance: METOPROLOL TARTRATE
  23. FUROSEMIDE [Concomitant]
     Active Substance: FUROSEMIDE
  24. ZOSYN [Concomitant]
     Active Substance: PIPERACILLIN SODIUM\TAZOBACTAM SODIUM
  25. MORPHINE [Concomitant]
     Active Substance: MORPHINE
  26. FISH OIL [Concomitant]
     Active Substance: FISH OIL
  27. TORADOL [Concomitant]
     Active Substance: KETOROLAC TROMETHAMINE
  28. POTASSIUM GLUCONATE [Concomitant]
     Active Substance: POTASSIUM GLUCONATE
  29. BECLOMETASONE DIPROPIONATE/CLOTRIMAZOLE/BENZYL ALCOHOL [Concomitant]
  30. VANCOMYCIN [Concomitant]
     Active Substance: VANCOMYCIN
  31. TIZANIDINE [Concomitant]
     Active Substance: TIZANIDINE
  32. FIORICET [Concomitant]
     Active Substance: ACETAMINOPHEN\BUTALBITAL\CAFFEINE
  33. LOTRISONE [Concomitant]
     Active Substance: BETAMETHASONE DIPROPIONATE\CLOTRIMAZOLE
  34. CLARITIN [Concomitant]
     Active Substance: LORATADINE
  35. FLONASE [Concomitant]
     Active Substance: FLUTICASONE PROPIONATE
  36. AUGMENTIN [Concomitant]
     Active Substance: AMOXICILLIN\CLAVULANATE POTASSIUM
  37. GLUCOTROL [Concomitant]
     Active Substance: GLIPIZIDE
  38. SYMBICORT [Concomitant]
     Active Substance: BUDESONIDE\FORMOTEROL FUMARATE DIHYDRATE
  39. KEPPRA [Concomitant]
     Active Substance: LEVETIRACETAM
  40. SOLU-MEDROL [Concomitant]
     Active Substance: METHYLPREDNISOLONE SODIUM SUCCINATE
  41. ALBUTEROL\IPRATROPIUM BROMIDE [Concomitant]
     Active Substance: ALBUTEROL\IPRATROPIUM BROMIDE
  42. GUAIFENESIN [Concomitant]
     Active Substance: GUAIFENESIN
  43. AMARYL [Concomitant]
     Active Substance: GLIMEPIRIDE
  44. AMBIEN [Concomitant]
     Active Substance: ZOLPIDEM TARTRATE
  45. VIIBRYD [Concomitant]
     Active Substance: VILAZODONE HYDROCHLORIDE
  46. ROXICODONE [Concomitant]
     Active Substance: OXYCODONE HYDROCHLORIDE
  47. PEHENERGAN [Concomitant]
  48. TESSALON [Concomitant]
     Active Substance: BENZONATATE
  49. LAMICTAL [Concomitant]
     Active Substance: LAMOTRIGINE
  50. UNSPECIFIED INGREDIENT [Concomitant]
     Active Substance: UNSPECIFIED INGREDIENT
  51. METHYLPREDNISOLONE [Concomitant]
     Active Substance: METHYLPREDNISOLONE
  52. DEXAMETHASONE [Concomitant]
     Active Substance: DEXAMETHASONE
  53. NUBAIN [Concomitant]
     Active Substance: NALBUPHINE HYDROCHLORIDE
  54. OXYCODONE [Concomitant]
     Active Substance: OXYCODONE
  55. HYDROMORPHONE [Concomitant]
     Active Substance: HYDROMORPHONE
  56. DAPTOMYCIN [Concomitant]
     Active Substance: DAPTOMYCIN
  57. CLINDAMYCIN [Concomitant]
     Active Substance: CLINDAMYCIN
  58. MAGNESIUM SULFATE [Concomitant]
     Active Substance: MAGNESIUM SULFATE
  59. MAGNESIUM OXIDE [Concomitant]
     Active Substance: MAGNESIUM OXIDE
  60. ZOLPIDEM [Concomitant]
     Active Substance: ZOLPIDEM TARTRATE
  61. NYSTATIN [Concomitant]
     Active Substance: NYSTATIN
  62. ALPRAZOLAM [Concomitant]
     Active Substance: ALPRAZOLAM
  63. TOPAMAX [Concomitant]
     Active Substance: TOPIRAMATE
  64. BENADRYL [Concomitant]
     Active Substance: DIPHENHYDRAMINE HYDROCHLORIDE
  65. LEVOTHYROXINE [Concomitant]
     Active Substance: LEVOTHYROXINE
  66. ZANAFLEX [Concomitant]
     Active Substance: TIZANIDINE HYDROCHLORIDE
  67. MONTELUKAST [Concomitant]
     Active Substance: MONTELUKAST SODIUM
  68. LABETALOL HYDROCHLORIDE [Concomitant]
     Active Substance: LABETALOL HYDROCHLORIDE

REACTIONS (4)
  - Acute kidney injury [Not Recovered/Not Resolved]
  - Chronic kidney disease [Unknown]
  - Renal failure [Not Recovered/Not Resolved]
  - Renal tubular necrosis [Unknown]

NARRATIVE: CASE EVENT DATE: 20151001
